FAERS Safety Report 9778307 (Version 1)
Quarter: 2013Q4

REPORT INFORMATION
  Report Type: Spontaneous
  Country: US (occurrence: None)
  Receive Date: 20131220
  Receipt Date: 20131220
  Transmission Date: 20140711
  Serious: Yes (Other)
  Sender: FDA-Public Use
  Company Number: None

PATIENT
  Age: 63 None
  Sex: Female

DRUGS (4)
  1. EVISTA(RALOXIFENE HCL) [Suspect]
     Indication: OSTEOPOROSIS
     Dosage: ONCE DAILY-TAKE IT WITH MY LUNCH
     Route: 048
     Dates: start: 20111206
  2. EVISTA [Concomitant]
  3. METHIMAZOLE [Concomitant]
  4. VITAMIN D 2000 [Concomitant]

REACTIONS (4)
  - Muscle spasms [None]
  - Pain [None]
  - Crying [None]
  - Thyroid disorder [None]
